FAERS Safety Report 11268585 (Version 1)
Quarter: 2015Q3

REPORT INFORMATION
  Report Type: Spontaneous
  Country: US (occurrence: US)
  Receive Date: 20150714
  Receipt Date: 20150714
  Transmission Date: 20151125
  Serious: No
  Sender: FDA-Public Use
  Company Number: US-JNJFOC-20150611046

PATIENT
  Sex: Female
  Weight: 92.99 kg

DRUGS (15)
  1. CO-Q10 [Concomitant]
     Indication: CARDIAC DISORDER
     Dates: start: 2014
  2. TRAMADOL. [Concomitant]
     Active Substance: TRAMADOL
     Indication: FIBROMYALGIA
  3. TIZANIDINE. [Concomitant]
     Active Substance: TIZANIDINE
     Indication: MUSCULOSKELETAL STIFFNESS
     Dosage: HALF TABLET IN NIGHT
     Dates: start: 201504
  4. FISH OIL [Concomitant]
     Active Substance: FISH OIL
     Indication: CARDIAC DISORDER
     Dates: start: 2011
  5. ALOE VERA [Concomitant]
     Active Substance: ALOE VERA LEAF
     Indication: CARDIAC DISORDER
     Dates: start: 2013
  6. VITAMIN D3 [Concomitant]
     Active Substance: CHOLECALCIFEROL
     Dosage: 400 UNITS.
     Dates: start: 2013
  7. CALCIUM [Concomitant]
     Active Substance: CALCIUM
     Indication: BONE DISORDER
     Dates: start: 2011
  8. VITAMIN B12 [Concomitant]
     Active Substance: CYANOCOBALAMIN
     Dates: start: 2012
  9. METOPROLOL [Concomitant]
     Active Substance: METOPROLOL
     Indication: HYPERTENSION
     Route: 065
     Dates: start: 2010
  10. FLAXSEED [Concomitant]
     Active Substance: FLAX SEED
     Dates: start: 2013
  11. TEA [Concomitant]
     Active Substance: TEA LEAF
     Dosage: 2 TABLETS IN MORNING
     Dates: start: 201504
  12. XARELTO [Suspect]
     Active Substance: RIVAROXABAN
     Indication: ATRIAL FLUTTER
     Dosage: STRENGTH: 20MG
     Route: 048
     Dates: start: 2012, end: 2012
  13. LIPITOR [Concomitant]
     Active Substance: ATORVASTATIN CALCIUM
     Indication: BLOOD CHOLESTEROL
     Dates: start: 2010
  14. ASPIRIN. [Concomitant]
     Active Substance: ASPIRIN
     Indication: COAGULOPATHY
     Dates: start: 2013
  15. TURMERIC [Concomitant]
     Active Substance: TURMERIC
     Dates: start: 201504

REACTIONS (1)
  - Adverse drug reaction [Unknown]

NARRATIVE: CASE EVENT DATE: 2012
